FAERS Safety Report 17896431 (Version 1)
Quarter: 2020Q2

REPORT INFORMATION
  Report Type: Spontaneous
  Country: US (occurrence: US)
  Receive Date: 20200612
  Receipt Date: 20200612
  Transmission Date: 20200714
  Serious: No
  Sender: FDA-Public Use
  Company Number: None

PATIENT
  Age: 70 Year
  Sex: Male
  Weight: 87 kg

DRUGS (2)
  1. REMDESIVIR (EUA) (REMDESIVIR (EUA)) [Suspect]
     Active Substance: REMDESIVIR
     Dates: start: 20200513, end: 20200513
  2. REMDESIVIR (EUA) (REMDESIVIR (EUA)) [Suspect]
     Active Substance: REMDESIVIR
     Indication: COVID-19
     Dates: start: 20200512, end: 20200518

REACTIONS (7)
  - Blood creatinine increased [None]
  - Urate nephropathy [None]
  - Nephropathy toxic [None]
  - Acute kidney injury [None]
  - Haemodialysis [None]
  - Hypotension [None]
  - Renal impairment [None]

NARRATIVE: CASE EVENT DATE: 20200519
